FAERS Safety Report 11635822 (Version 1)
Quarter: 2015Q4

REPORT INFORMATION
  Report Type: Spontaneous
  Country: US (occurrence: US)
  Receive Date: 20151016
  Receipt Date: 20151016
  Transmission Date: 20160304
  Serious: No
  Sender: FDA-Public Use
  Company Number: US-PFIZER INC-2015347849

PATIENT
  Age: 52 Year
  Sex: Female

DRUGS (2)
  1. BICILLIN L-A [Suspect]
     Active Substance: PENICILLIN G BENZATHINE
     Indication: BACTERIAL INFECTION
     Dosage: 1200000 IU PER 2 ML
  2. BICILLIN C-R 900/300 [Suspect]
     Active Substance: PENICILLIN G BENZATHINE\PENICILLIN G PROCAINE
     Indication: BACTERIAL INFECTION
     Dosage: 1200000 IU PER 2 ML
     Dates: start: 201509, end: 201509

REACTIONS (3)
  - Injection site pain [Unknown]
  - Wrong drug administered [Unknown]
  - Drug dispensing error [Unknown]

NARRATIVE: CASE EVENT DATE: 201509
